FAERS Safety Report 6003698-X (Version None)
Quarter: 2008Q4

REPORT INFORMATION
  Report Type: 
  Country: None (occurrence: None)
  Receive Date: 20081212
  Receipt Date: 20081212
  Transmission Date: 20090506
  Serious: No
  Sender: FDA-Public Use
  Company Number: None

PATIENT
  Sex: Male
  Weight: 88.4514 kg

DRUGS (1)
  1. ADVAIR DISKUS 250/50 [Suspect]

REACTIONS (4)
  - BRONCHIAL SECRETION RETENTION [None]
  - DRUG DEPENDENCE [None]
  - DYSPNOEA [None]
  - DYSPNOEA EXERTIONAL [None]
